FAERS Safety Report 7060025-7 (Version None)
Quarter: 2010Q4

REPORT INFORMATION
  Report Type: 
  Country: None (occurrence: None)
  Receive Date: 20101025
  Receipt Date: 20101014
  Transmission Date: 20110411
  Serious: Yes (Other)
  Sender: FDA-Public Use
  Company Number: US-ROCHE-427207

PATIENT
  Sex: Male
  Weight: 86.6 kg

DRUGS (5)
  1. ACCUTANE [Suspect]
     Route: 048
     Dates: start: 19980422, end: 19980513
  2. ACCUTANE [Suspect]
     Dosage: IT WAS REPORTED THAT THE PATIENT WAS TAKING ACCUTANE 40 MG TID, AND ACCUTANE WAS THEN DECREASED TO +
     Route: 048
     Dates: start: 19980513, end: 19980617
  3. ACCUTANE [Suspect]
     Route: 048
     Dates: start: 19980617, end: 19980808
  4. ACCUTANE [Suspect]
     Route: 048
     Dates: start: 19980808, end: 19980920
  5. TETANUS-DIPHTHERIA VACCINE [Concomitant]
     Dosage: REPORTED AS TETANU DIPTHERIA TOXOIDS.
     Dates: start: 19980625

REACTIONS (20)
  - ANAEMIA [None]
  - ANAL FISSURE [None]
  - ARTHRALGIA [None]
  - ARTHRITIS [None]
  - BOWEL MOVEMENT IRREGULARITY [None]
  - CHEILITIS [None]
  - COLITIS ULCERATIVE [None]
  - CROHN'S DISEASE [None]
  - DEPRESSION [None]
  - ERYTHEMA [None]
  - GASTROINTESTINAL INJURY [None]
  - HAEMORRHAGE [None]
  - INFLAMMATORY BOWEL DISEASE [None]
  - JOINT INJURY [None]
  - LEUKOCYTOSIS [None]
  - MUSCLE INJURY [None]
  - MYALGIA [None]
  - NASAL DRYNESS [None]
  - PAINFUL DEFAECATION [None]
  - PROCTITIS [None]
